FAERS Safety Report 15266553 (Version 1)
Quarter: 2018Q3

REPORT INFORMATION
  Report Type: Spontaneous
  Country: FR (occurrence: FR)
  Receive Date: 20180810
  Receipt Date: 20180810
  Transmission Date: 20181010
  Serious: Yes (Death)
  Sender: FDA-Public Use
  Company Number: PHHY2018FR068652

PATIENT
  Age: 83 Year
  Sex: Male

DRUGS (2)
  1. VANCOMYCINE MYLAN [Suspect]
     Active Substance: VANCOMYCIN
     Indication: ENDOCARDITIS
     Dosage: 2 G, UNK
     Route: 042
     Dates: start: 20180520, end: 20180526
  2. RIMACTAN [Suspect]
     Active Substance: RIFAMPIN
     Indication: ENDOCARDITIS
     Dosage: 1200 MG, UNK
     Route: 048
     Dates: start: 20180528, end: 20180611

REACTIONS (1)
  - Acute kidney injury [Fatal]

NARRATIVE: CASE EVENT DATE: 20180528
